FAERS Safety Report 7944603-6 (Version None)
Quarter: 2011Q4

REPORT INFORMATION
  Report Type: 
  Country: None (occurrence: None)
  Receive Date: 20111129
  Receipt Date: 20111117
  Transmission Date: 20120403
  Serious: Yes (Hospitalization)
  Sender: FDA-Public Use
  Company Number: HU-JNJFOC-20111009941

PATIENT
  Sex: Female
  Weight: 54 kg

DRUGS (8)
  1. MESALAZIN [Concomitant]
     Route: 048
     Dates: start: 20101108
  2. ALPRAZOLAM [Concomitant]
     Route: 048
     Dates: start: 20100119
  3. GOLIMUMAB [Suspect]
     Route: 058
     Dates: start: 20100526
  4. ETHINYL ESTRADIOL [Concomitant]
     Route: 048
     Dates: start: 20090801
  5. ASCORBIC ACID [Concomitant]
     Route: 048
     Dates: start: 20090205
  6. GOLIMUMAB [Suspect]
     Indication: COLITIS ULCERATIVE
     Route: 058
     Dates: start: 20091027
  7. GOLIMUMAB [Suspect]
     Route: 058
     Dates: start: 20090914
  8. DROSPIRENONE [Concomitant]
     Route: 048
     Dates: start: 20090801

REACTIONS (1)
  - RECTAL ABSCESS [None]
